FAERS Safety Report 16307390 (Version 1)
Quarter: 2019Q2

REPORT INFORMATION
  Report Type: Report from Study
  Country: None (occurrence: BR)
  Receive Date: 20190514
  Receipt Date: 20190514
  Transmission Date: 20190711
  Serious: Yes (Hospitalization)
  Sender: FDA-Public Use
  Company Number: BR-ABBVIE-19K-020-2779218-00

PATIENT
  Sex: Female
  Weight: 54 kg

DRUGS (1)
  1. HUMIRA [Suspect]
     Active Substance: ADALIMUMAB
     Indication: CROHN^S DISEASE
     Route: 058
     Dates: start: 20170601

REACTIONS (6)
  - Crohn^s disease [Unknown]
  - Musculoskeletal stiffness [Unknown]
  - Gastrointestinal infection [Not Recovered/Not Resolved]
  - Pain [Recovering/Resolving]
  - Pain [Recovered/Resolved]
  - Intestinal obstruction [Recovering/Resolving]
